FAERS Safety Report 14764120 (Version 1)
Quarter: 2018Q2

REPORT INFORMATION
  Report Type: Spontaneous
  Country: GB (occurrence: GB)
  Receive Date: 20180416
  Receipt Date: 20180416
  Transmission Date: 20180711
  Serious: Yes (Hospitalization, Other)
  Sender: FDA-Public Use
  Company Number: GB-AMGEN-GBRSP2018048581

PATIENT
  Age: 83 Year
  Sex: Male

DRUGS (1)
  1. CINACALCET HCL [Suspect]
     Active Substance: CINACALCET HYDROCHLORIDE
     Indication: ADJUSTED CALCIUM INCREASED
     Dosage: UNK
     Route: 065
     Dates: start: 2012, end: 2014

REACTIONS (5)
  - Drug intolerance [Unknown]
  - Hungry bone syndrome [Unknown]
  - Polydipsia [Unknown]
  - Parathyroid tumour benign [Unknown]
  - Polyuria [Unknown]

NARRATIVE: CASE EVENT DATE: 201510
